FAERS Safety Report 6959637-8 (Version None)
Quarter: 2010Q3

REPORT INFORMATION
  Report Type: 
  Country: None (occurrence: None)
  Receive Date: 20100827
  Receipt Date: 20100816
  Transmission Date: 20110219
  Serious: No
  Sender: FDA-Public Use
  Company Number: 010786

PATIENT
  Age: 25 Year
  Sex: Female
  Weight: 53 kg

DRUGS (2)
  1. CILOSTAZOL [Suspect]
     Indication: CEREBRAL ARTERY EMBOLISM
     Dosage: 200 MG, ORAL
     Route: 048
  2. HEPARIN [Suspect]
     Indication: CEREBRAL ARTERY EMBOLISM
     Dosage: 10000 DF, DAILY DOSE IV DRIP
     Route: 041

REACTIONS (4)
  - ARTERY DISSECTION [None]
  - CEREBRAL INFARCTION [None]
  - HEADACHE [None]
  - INTRACRANIAL ANEURYSM [None]
